FAERS Safety Report 19828097 (Version 1)
Quarter: 2021Q3

REPORT INFORMATION
  Report Type: Spontaneous
  Country: AU (occurrence: AU)
  Receive Date: 20210914
  Receipt Date: 20210914
  Transmission Date: 20211014
  Serious: Yes (Hospitalization, Other)
  Sender: FDA-Public Use
  Company Number: AU-MYLANLABS-2021M1053506

PATIENT
  Age: 54 Year
  Sex: Female

DRUGS (1)
  1. CLOZARIL [Suspect]
     Active Substance: CLOZAPINE
     Indication: SCHIZOPHRENIA
     Dosage: UNK
     Route: 048
     Dates: start: 20210616, end: 20210813

REACTIONS (3)
  - Renal failure [Unknown]
  - Hospitalisation [Recovered/Resolved]
  - Pyrexia [Unknown]

NARRATIVE: CASE EVENT DATE: 2021
